FAERS Safety Report 5530742-6 (Version None)
Quarter: 2007Q4

REPORT INFORMATION
  Report Type: 
  Country: None (occurrence: None)
  Receive Date: 20071128
  Receipt Date: 20071128
  Transmission Date: 20080405
  Serious: Yes (Hospitalization)
  Sender: FDA-Public Use
  Company Number: None

PATIENT
  Sex: Female
  Weight: 73.09 kg

DRUGS (2)
  1. CARBOPLATIN [Suspect]
     Dosage: 435 MG CYCLE 2 DAY 1
     Dates: start: 20071029
  2. GEMCITABINE HCL [Suspect]
     Dosage: 3780 MG CYCLE 2 DAY Q WAS 10/29/2007 CYCLE 2 DAY 8 WAS 11/05/2007
     Dates: start: 20071105

REACTIONS (4)
  - HAEMOGLOBIN DECREASED [None]
  - NEUTROPHIL COUNT DECREASED [None]
  - PLATELET COUNT DECREASED [None]
  - WHITE BLOOD CELL COUNT DECREASED [None]
